FAERS Safety Report 25343737 (Version 1)
Quarter: 2025Q2

REPORT INFORMATION
  Report Type: Spontaneous
  Country: US (occurrence: US)
  Receive Date: 20250521
  Receipt Date: 20250521
  Transmission Date: 20250716
  Serious: Yes (Hospitalization, Other)
  Sender: Unknown Manufacturer
  Company Number: US-CYCLE PHARMACEUTICALS LTD-2025-CYC-000089

PATIENT

DRUGS (2)
  1. NITYR [Suspect]
     Active Substance: NITISINONE
     Indication: Tyrosinaemia
     Dosage: FOUR 10 MG TABLETS AND ONE 5 MG TABLET. TOTAL DOSE OF 45 MG, QD
     Route: 048
  2. NITYR [Suspect]
     Active Substance: NITISINONE
     Indication: Tyrosinaemia
     Dosage: FOUR 10 MG TABLETS AND ONE 5 MG TABLET. TOTAL DOSE OF 45 MG, QD
     Route: 048

REACTIONS (7)
  - Renal failure [Unknown]
  - Hepatic failure [Unknown]
  - Pneumonia [Unknown]
  - Oesophageal infection [Unknown]
  - Gastrointestinal infection [Unknown]
  - Product dose omission in error [Unknown]
  - Memory impairment [Unknown]

NARRATIVE: CASE EVENT DATE: 20250101
